FAERS Safety Report 4896041-0 (Version None)
Quarter: 2005Q4

REPORT INFORMATION
  Report Type: 
  Country: None (occurrence: None)
  Receive Date: 20051220
  Receipt Date: 20050422
  Transmission Date: 20060501
  Serious: Yes (Other)
  Sender: FDA-Public Use
  Company Number: US043444

PATIENT
  Age: 56 Year
  Sex: Male

DRUGS (4)
  1. ENBREL [Suspect]
     Indication: PSORIATIC ARTHROPATHY
     Dosage: 25 MG, TWICE WEEKLY, SC
     Route: 058
     Dates: start: 20030401, end: 20030701
  2. ENBREL [Suspect]
     Indication: PSORIATIC ARTHROPATHY
     Dosage: 25 MG, TWICE WEEKLY, SC
     Route: 058
     Dates: start: 20050101
  3. CALCIPOTRIENE [Concomitant]
  4. CLOBETASOL PROPIONATE [Concomitant]

REACTIONS (2)
  - DEPRESSION [None]
  - PENIS CARCINOMA [None]
